FAERS Safety Report 6461112-4 (Version None)
Quarter: 2009Q4

REPORT INFORMATION
  Report Type: 
  Country: None (occurrence: None)
  Receive Date: 20091130
  Receipt Date: 20091118
  Transmission Date: 20100525
  Serious: Yes (Life-Threatening)
  Sender: FDA-Public Use
  Company Number: B0608882A

PATIENT
  Age: 31 Year
  Sex: Female

DRUGS (1)
  1. CIBLOR [Suspect]
     Indication: ORAL INFECTION
     Dosage: 1Z SINGLE DOSE
     Route: 048
     Dates: start: 19950101, end: 19950101

REACTIONS (2)
  - ANAPHYLACTOID SHOCK [None]
  - BLOOD PRESSURE DECREASED [None]
